FAERS Safety Report 6735272-1 (Version None)
Quarter: 2010Q2

REPORT INFORMATION
  Report Type: 
  Country: None (occurrence: None)
  Receive Date: 20100521
  Receipt Date: 20100512
  Transmission Date: 20101027
  Serious: Yes (Other)
  Sender: FDA-Public Use
  Company Number: FR-ASTRAZENECA-2010SE19147

PATIENT
  Sex: Female

DRUGS (9)
  1. ARIMIDEX [Suspect]
     Indication: BREAST CANCER
     Dosage: DAILY
     Route: 048
  2. FUROSEMIDE [Concomitant]
  3. NEBIVOLOL [Concomitant]
     Dosage: HALF PER DAY
  4. SPIRONOLACTONE [Concomitant]
     Dosage: ONE PER DAY
  5. TRIMETAZIDINE [Concomitant]
     Dosage: TWO PER DAY
  6. PERINDOPRIL [Concomitant]
     Dosage: ONE PER DAY
  7. KETOMOPANE [Concomitant]
     Dosage: AS REQUIRED
  8. PROPOFAN [Concomitant]
     Dosage: ONE PER DAY
  9. TANAKAN [Concomitant]

REACTIONS (2)
  - TRANSIENT ISCHAEMIC ATTACK [None]
  - VISION BLURRED [None]
